FAERS Safety Report 14525351 (Version 3)
Quarter: 2018Q2

REPORT INFORMATION
  Report Type: Spontaneous
  Country: JP (occurrence: JP)
  Receive Date: 20180213
  Receipt Date: 20180419
  Transmission Date: 20180711
  Serious: Yes (Death)
  Sender: FDA-Public Use
  Company Number: JP-FERRINGPH-2018FE00569

PATIENT

DRUGS (3)
  1. GONAX [Suspect]
     Active Substance: DEGARELIX
     Indication: PROSTATE CANCER
     Dosage: 240 MG, ONCE/SINGLE
     Route: 058
     Dates: start: 20171218, end: 20171218
  2. BICALUTAMIDE. [Concomitant]
     Active Substance: BICALUTAMIDE
     Dosage: UNK
     Route: 048
     Dates: start: 20171212, end: 20171220
  3. OXYCODONE [Concomitant]
     Active Substance: OXYCODONE
     Dosage: 2 DF, X2
     Dates: start: 20171213, end: 20171220

REACTIONS (1)
  - Cardiac failure [Fatal]

NARRATIVE: CASE EVENT DATE: 20171226
